FAERS Safety Report 6464328-6 (Version None)
Quarter: 2009Q4

REPORT INFORMATION
  Report Type: 
  Country: None (occurrence: None)
  Receive Date: 20091201
  Receipt Date: 20091006
  Transmission Date: 20100525
  Serious: Yes (Life-Threatening, Hospitalization, Other)
  Sender: FDA-Public Use
  Company Number: US-SANOFI-AVENTIS-F03200700138

PATIENT
  Age: 51 Year
  Sex: Female
  Weight: 63 kg

DRUGS (21)
  1. OXALIPLATIN [Suspect]
     Indication: COLORECTAL CANCER
     Route: 042
     Dates: start: 20060918, end: 20060918
  2. OXALIPLATIN [Suspect]
     Route: 042
     Dates: start: 20060530, end: 20060530
  3. ALL OTHER THERAPEUTIC PRODUCTS [Suspect]
     Indication: COLORECTAL CANCER
     Dosage: UNIT DOSE: 5 MG
     Route: 048
     Dates: start: 20060531, end: 20070108
  4. BEVACIZUMAB [Suspect]
     Indication: COLORECTAL CANCER
     Route: 042
     Dates: start: 20060918, end: 20060918
  5. BEVACIZUMAB [Suspect]
     Route: 042
     Dates: start: 20060530, end: 20060530
  6. FLUOROURACIL [Suspect]
     Indication: COLORECTAL CANCER
     Route: 042
     Dates: start: 20060920, end: 20060920
  7. FLUOROURACIL [Suspect]
     Route: 042
     Dates: start: 20060530, end: 20060530
  8. LEUCOVORIN CALCIUM [Suspect]
     Indication: COLORECTAL CANCER
     Route: 042
     Dates: start: 20060530, end: 20060530
  9. LEUCOVORIN CALCIUM [Suspect]
     Route: 042
     Dates: start: 20060620, end: 20060620
  10. LEUCOVORIN CALCIUM [Suspect]
     Route: 042
     Dates: start: 20060703, end: 20060703
  11. LEUCOVORIN CALCIUM [Suspect]
     Route: 042
     Dates: start: 20060717, end: 20060717
  12. LEUCOVORIN CALCIUM [Suspect]
     Route: 042
     Dates: start: 20060731, end: 20060731
  13. LEUCOVORIN CALCIUM [Suspect]
     Route: 042
     Dates: start: 20060814, end: 20060814
  14. LEUCOVORIN CALCIUM [Suspect]
     Route: 042
     Dates: start: 20060828, end: 20060828
  15. LEUCOVORIN CALCIUM [Suspect]
     Route: 042
     Dates: start: 20060918, end: 20060918
  16. LEUCOVORIN CALCIUM [Suspect]
     Route: 042
     Dates: end: 20061226
  17. LISINOPRIL [Concomitant]
     Route: 048
     Dates: start: 20060101
  18. METFORMIN HCL [Concomitant]
     Route: 048
     Dates: start: 20060717, end: 20060921
  19. PROTONIX [Concomitant]
     Route: 048
     Dates: start: 20060717
  20. ACETYLSALICYLIC ACID [Concomitant]
     Route: 048
     Dates: start: 20060719
  21. NORVASC [Concomitant]
     Route: 048
     Dates: start: 20060613, end: 20060921

REACTIONS (2)
  - LIVER FUNCTION TEST ABNORMAL [None]
  - RESPIRATORY FAILURE [None]
